FAERS Safety Report 7632853-8 (Version None)
Quarter: 2011Q3

REPORT INFORMATION
  Report Type: 
  Country: None (occurrence: None)
  Receive Date: 20110725
  Receipt Date: 20110711
  Transmission Date: 20111222
  Serious: Yes (Other)
  Sender: FDA-Public Use
  Company Number: PHHY2010AU74735

PATIENT
  Sex: Male

DRUGS (12)
  1. ZOMETA [Suspect]
     Indication: OSTEOPOROSIS
     Dosage: 4 MG EVERY 3 TO 6 MONTHS
     Route: 042
     Dates: start: 20090301
  2. ZOMETA [Suspect]
     Dosage: 4 MG,EVERY 3 TO 6 MONTHS
     Route: 042
     Dates: start: 20100801
  3. GLUCOVANCE [Concomitant]
     Dosage: 500 UKN, UNK
     Route: 048
     Dates: start: 20110101
  4. RAMIPRIL [Concomitant]
     Indication: HYPERTENSION
     Dosage: 5 MG DAILY
     Dates: start: 20000101
  5. ZOLEDRONOC ACID [Suspect]
     Indication: OSTEOPOROSIS
     Dosage: 4 MG EVERY 3 TO 6 MONTH
     Route: 042
     Dates: start: 20090301
  6. ZOLEDRONOC ACID [Suspect]
     Dosage: 4 MG EVERY 3 TO 6 MONTH
     Route: 042
     Dates: start: 20100801
  7. VITAMIN B [Concomitant]
     Dosage: UNK UKN, UNK
  8. DIABEX S.R. [Concomitant]
     Dosage: 500 UKN, UNK
     Route: 048
     Dates: start: 20070101
  9. MAGNESIUM [Concomitant]
     Dosage: UNK UKN, UNK
  10. VITAMIN D [Concomitant]
     Dosage: UNK UKN, UNK
     Route: 042
  11. PREDNISOLONE [Concomitant]
     Dosage: EVERY SECOND DAY
  12. NOVOLOG [Concomitant]
     Dosage: 38 U DAILY
     Route: 058
     Dates: start: 20090101

REACTIONS (6)
  - DENTAL CARIES [None]
  - PURULENT DISCHARGE [None]
  - OSTEONECROSIS OF JAW [None]
  - ORAL MUCOSAL ERYTHEMA [None]
  - OEDEMA MOUTH [None]
  - MOUTH ULCERATION [None]
